FAERS Safety Report 6961370-3 (Version None)
Quarter: 2010Q3

REPORT INFORMATION
  Report Type: 
  Country: None (occurrence: None)
  Receive Date: 20100901
  Receipt Date: 20100831
  Transmission Date: 20110219
  Serious: Yes (Other)
  Sender: FDA-Public Use
  Company Number: B0672354A

PATIENT
  Sex: Female

DRUGS (8)
  1. AUGMENTIN '125' [Suspect]
     Indication: PRODUCT USED FOR UNKNOWN INDICATION
     Route: 065
     Dates: start: 20091104, end: 20091108
  2. SELOKEN LP [Concomitant]
     Dosage: 100MG PER DAY
     Route: 065
  3. DIAMICRON [Concomitant]
     Dosage: 30MG FOUR TIMES PER DAY
     Route: 065
  4. ACTOS [Concomitant]
     Dosage: 30MG PER DAY
     Route: 065
  5. LASIX [Concomitant]
     Dosage: 40MG THREE TIMES PER DAY
     Route: 065
  6. DIFFU K [Concomitant]
     Dosage: 3UNIT PER DAY
     Route: 065
  7. VITABACT [Concomitant]
     Dosage: 4UNIT PER DAY
     Route: 065
  8. APROVEL [Concomitant]
     Route: 065
     Dates: end: 20091030

REACTIONS (6)
  - CONJUNCTIVITIS [None]
  - PRURITUS [None]
  - RASH ERYTHEMATOUS [None]
  - RASH MACULO-PAPULAR [None]
  - SCRATCH [None]
  - SKIN LESION [None]
